FAERS Safety Report 10251034 (Version 1)
Quarter: 2014Q2

REPORT INFORMATION
  Report Type: Spontaneous
  Country: US (occurrence: US)
  Receive Date: 20140620
  Receipt Date: 20140620
  Transmission Date: 20141212
  Serious: Yes (Death)
  Sender: FDA-Public Use
  Company Number: US-ROXANE LABORATORIES, INC.-2014-RO-00951RO

PATIENT
  Age: 17 Year
  Sex: Female

DRUGS (3)
  1. LITHIUM CARBONATE [Suspect]
     Indication: AFFECTIVE DISORDER
     Route: 065
  2. 251-NBOME [Suspect]
     Indication: PRODUCT USED FOR UNKNOWN INDICATION
     Route: 048
  3. TOPIRAMATE [Suspect]
     Indication: AFFECTIVE DISORDER
     Route: 065

REACTIONS (7)
  - Toxicity to various agents [Fatal]
  - Status epilepticus [Fatal]
  - Hyperthermia [Fatal]
  - Rhabdomyolysis [Fatal]
  - Multi-organ failure [Fatal]
  - Brain oedema [Fatal]
  - Serotonin syndrome [Fatal]
